FAERS Safety Report 4922564-1 (Version None)
Quarter: 2006Q1

REPORT INFORMATION
  Report Type: 
  Country: None (occurrence: None)
  Receive Date: 20060224
  Receipt Date: 20060221
  Transmission Date: 20060701
  Serious: Yes (Other)
  Sender: FDA-Public Use
  Company Number: US-GLAXOSMITHKLINE-A0594652A

PATIENT
  Age: 63 Year
  Sex: Female

DRUGS (15)
  1. BUPROPION HYDROCHLORIDE [Suspect]
     Indication: DEPRESSION
     Route: 048
  2. WELLBUTRIN [Suspect]
     Indication: DEPRESSION
     Route: 048
     Dates: start: 20051101
  3. EFFEXOR [Concomitant]
  4. OXYGEN [Concomitant]
  5. ALBUTEROL [Concomitant]
     Route: 055
  6. IBUPROFEN [Concomitant]
  7. ADVAIR DISKUS 100/50 [Concomitant]
  8. BENICAR [Concomitant]
  9. BUSPAR [Concomitant]
  10. CALCIUM GLUCONATE [Concomitant]
  11. PREDNISONE [Concomitant]
  12. ACTONEL [Concomitant]
  13. CENTRUM VITAMINS [Concomitant]
  14. MUCINEX [Concomitant]
  15. SINGULAIR [Concomitant]

REACTIONS (9)
  - ABNORMAL DREAMS [None]
  - ANOREXIA [None]
  - CRYING [None]
  - DECREASED INTEREST [None]
  - DEPRESSION [None]
  - INSOMNIA [None]
  - LETHARGY [None]
  - SUICIDAL IDEATION [None]
  - WEIGHT DECREASED [None]
